FAERS Safety Report 6069046-4 (Version None)
Quarter: 2009Q1

REPORT INFORMATION
  Report Type: 
  Country: None (occurrence: None)
  Receive Date: 20090203
  Receipt Date: 20090119
  Transmission Date: 20090719
  Serious: Yes (Other)
  Sender: FDA-Public Use
  Company Number: DE-1168383

PATIENT

DRUGS (1)
  1. FLUORESCITE [Suspect]
     Indication: ANGIOGRAM RETINA
     Dosage: INTRAVENOUS BOLUS
     Route: 040

REACTIONS (7)
  - EYE IRRITATION [None]
  - EYE PRURITUS [None]
  - HEADACHE [None]
  - VISION BLURRED [None]
  - VISUAL IMPAIRMENT [None]
  - VOMITING [None]
  - YELLOW SKIN [None]
